FAERS Safety Report 6972997-7 (Version None)
Quarter: 2010Q3

REPORT INFORMATION
  Report Type: 
  Country: None (occurrence: None)
  Receive Date: 20100909
  Receipt Date: 20100830
  Transmission Date: 20110219
  Serious: Yes (Death, Hospitalization)
  Sender: FDA-Public Use
  Company Number: IN-JNJFOC-20100900564

PATIENT
  Age: 56 Year
  Sex: Male

DRUGS (1)
  1. REOPRO [Suspect]
     Indication: ANGIOPLASTY
     Route: 042

REACTIONS (1)
  - CARDIOGENIC SHOCK [None]
